FAERS Safety Report 10345308 (Version 2)
Quarter: 2014Q3

REPORT INFORMATION
  Report Type: Spontaneous
  Country: US (occurrence: US)
  Receive Date: 20140728
  Receipt Date: 20140901
  Transmission Date: 20150326
  Serious: No
  Sender: FDA-Public Use
  Company Number: US-009507513-1407USA007156

PATIENT
  Age: 16 Year
  Sex: Female

DRUGS (1)
  1. NEXPLANON [Suspect]
     Active Substance: ETONOGESTREL
     Indication: MENSTRUAL CYCLE MANAGEMENT
     Dosage: ONE ROD IN LEFT ARM FOR THREE YEARS
     Route: 059
     Dates: start: 20131021

REACTIONS (8)
  - Chest discomfort [Unknown]
  - Weight increased [Unknown]
  - Limb discomfort [Unknown]
  - Metrorrhagia [Unknown]
  - Drug administration error [Unknown]
  - Dyspnoea [Unknown]
  - Pruritus [Unknown]
  - Abdominal pain upper [Unknown]

NARRATIVE: CASE EVENT DATE: 20131021
